FAERS Safety Report 20737221 (Version 2)
Quarter: 2022Q2

REPORT INFORMATION
  Report Type: Spontaneous
  Country: US (occurrence: US)
  Receive Date: 20220421
  Receipt Date: 20220428
  Transmission Date: 20220721
  Serious: Yes (Other)
  Sender: FDA-Public Use
  Company Number: US-TEVA-2022-US-2027427

PATIENT
  Age: 69 Year
  Sex: Male

DRUGS (2)
  1. CEPHALEXIN [Suspect]
     Active Substance: CEPHALEXIN
     Indication: Osteomyelitis
     Dosage: 2000 MILLIGRAM DAILY; 500 MG
     Route: 065
     Dates: start: 202112
  2. CEPHALEXIN [Suspect]
     Active Substance: CEPHALEXIN
     Dosage: 3000 MILLIGRAM DAILY; 500 MG
     Route: 065

REACTIONS (6)
  - Magnetic resonance imaging abnormal [Not Recovered/Not Resolved]
  - Functional gastrointestinal disorder [Unknown]
  - Drug intolerance [Unknown]
  - Therapeutic product effect incomplete [Not Recovered/Not Resolved]
  - Diarrhoea [Unknown]
  - Dyspepsia [Unknown]

NARRATIVE: CASE EVENT DATE: 20211201
